FAERS Safety Report 5743731-3 (Version None)
Quarter: 2008Q2

REPORT INFORMATION
  Report Type: 
  Country: None (occurrence: None)
  Receive Date: 20080516
  Receipt Date: 20080506
  Transmission Date: 20081010
  Serious: Yes (Other)
  Sender: FDA-Public Use
  Company Number: ADE2008-0190

PATIENT
  Age: 33 Year
  Sex: Female

DRUGS (3)
  1. FLUOXETINE HCL [Suspect]
     Indication: ANXIETY
     Dosage: 20MG, ORAL
     Route: 048
     Dates: start: 20071128, end: 20071221
  2. FLUOXETINE HCL [Suspect]
     Indication: DEPRESSED MOOD
     Dosage: 20MG, ORAL
     Route: 048
     Dates: start: 20071128, end: 20071221
  3. TRANEXAMIC ACID [Concomitant]

REACTIONS (1)
  - JOINT STIFFNESS [None]
